FAERS Safety Report 9253240 (Version 2)
Quarter: 2013Q2

REPORT INFORMATION
  Report Type: Spontaneous
  Country: GB (occurrence: GB)
  Receive Date: 20130424
  Receipt Date: 20130626
  Transmission Date: 20140414
  Serious: Yes (Other)
  Sender: FDA-Public Use
  Company Number: GB-PFIZER INC-2013124606

PATIENT
  Age: 66 Year
  Sex: Male

DRUGS (7)
  1. VIAGRA [Suspect]
  2. SINEMET [Concomitant]
  3. ROPINIROLE [Concomitant]
  4. MADOPAR [Concomitant]
  5. DIHYDROCODEINE/PARACETAMOL [Concomitant]
  6. OMEPRAZOLE [Concomitant]
  7. THIAMINE [Concomitant]

REACTIONS (5)
  - Cardiac disorder [Unknown]
  - Cough [Unknown]
  - Abdominal pain lower [Unknown]
  - Musculoskeletal chest pain [Unknown]
  - Musculoskeletal pain [Unknown]
